FAERS Safety Report 4872228-8 (Version None)
Quarter: 2005Q4

REPORT INFORMATION
  Report Type: 
  Country: None (occurrence: None)
  Receive Date: 20051201
  Receipt Date: 20050801
  Transmission Date: 20060501
  Serious: No
  Sender: FDA-Public Use
  Company Number: 2005PV000763

PATIENT
  Age: 52 Year
  Sex: Female
  Weight: 205.4795 kg

DRUGS (18)
  1. BYETTA [Suspect]
     Indication: DIABETES MELLITUS NON-INSULIN-DEPENDENT
     Dosage: 5 MCG; BID; SC
     Route: 058
     Dates: start: 20050721
  2. METFORMIN HCL [Concomitant]
  3. STARLIX [Concomitant]
  4. NEURONTIN [Concomitant]
  5. TRAZODONE [Concomitant]
  6. LISINOPRIL [Concomitant]
  7. LIPITOR [Concomitant]
  8. IRON [Concomitant]
  9. ASCORBIC ACID [Concomitant]
  10. MULTIMINERAL [Concomitant]
  11. ALPHA LIPOIC ACID [Concomitant]
  12. EVENING PRIMOSE OIL [Concomitant]
  13. COENZYME Q10 [Concomitant]
  14. ASPIRIN [Concomitant]
  15. CALCIUM GLUCONATE [Concomitant]
  16. MAGNESIUM [Concomitant]
  17. ZINC [Concomitant]
  18. HYDROCODONE BITARTRATE [Concomitant]

REACTIONS (4)
  - ABDOMINAL DISCOMFORT [None]
  - ERUCTATION [None]
  - NAUSEA [None]
  - VOMITING [None]
